FAERS Safety Report 9667646 (Version 1)
Quarter: 2013Q4

REPORT INFORMATION
  Report Type: Spontaneous
  Country: US (occurrence: US)
  Receive Date: 20131101
  Receipt Date: 20131101
  Transmission Date: 20140711
  Serious: No
  Sender: FDA-Public Use
  Company Number: US-SAVIENT-2012S1000081

PATIENT
  Sex: Male

DRUGS (1)
  1. KRYSTEXXA INJECTION [Suspect]
     Indication: PRODUCT USED FOR UNKNOWN INDICATION
     Route: 042
     Dates: start: 201205

REACTIONS (1)
  - Oedema peripheral [Not Recovered/Not Resolved]
